FAERS Safety Report 6187891-1 (Version None)
Quarter: 2009Q2

REPORT INFORMATION
  Report Type: 
  Country: None (occurrence: None)
  Receive Date: 20090511
  Receipt Date: 20090511
  Transmission Date: 20091009
  Serious: Yes (Life-Threatening, Other)
  Sender: FDA-Public Use
  Company Number: None

PATIENT
  Age: 52 Year
  Sex: Male
  Weight: 92.9874 kg

DRUGS (2)
  1. RISPERDAL [Suspect]
     Dosage: .05MG AT NIGHT
     Dates: start: 20060101
  2. RISPERDAL [Suspect]

REACTIONS (5)
  - DISORIENTATION [None]
  - FEELING ABNORMAL [None]
  - MALAISE [None]
  - ROAD TRAFFIC ACCIDENT [None]
  - VISION BLURRED [None]
